FAERS Safety Report 8543953-2 (Version None)
Quarter: 2012Q3

REPORT INFORMATION
  Report Type: 
  Country: None (occurrence: None)
  Receive Date: 20120717
  Receipt Date: 20120706
  Transmission Date: 20120928
  Serious: Yes (Other)
  Sender: FDA-Public Use
  Company Number: JPI-P-021513

PATIENT
  Age: 49 Year
  Sex: Female

DRUGS (6)
  1. AMPHETAMINE, DEXTROAMPHETAMINE MIXED SALTS (TABLETS) [Concomitant]
  2. ERGOCALCIFEROL (CAPSULES) [Concomitant]
  3. POTASSIUM CHLORIDE (CAPSULES) [Concomitant]
  4. ARMODAFINIL (TABLETS) [Concomitant]
  5. FUROSEMIDE [Concomitant]
  6. XYREM [Suspect]
     Indication: CATAPLEXY
     Dosage: 3 GM (1.5 GM, 2 IN 1 D), ORAL
     Route: 048
     Dates: start: 20060509, end: 20071023

REACTIONS (2)
  - BREAST CANCER FEMALE [None]
  - MALABSORPTION [None]
